FAERS Safety Report 9062527 (Version 1)
Quarter: 2013Q1

REPORT INFORMATION
  Report Type: Spontaneous
  Country: US (occurrence: US)
  Receive Date: 20130111
  Receipt Date: 20130111
  Transmission Date: 20140127
  Serious: No
  Sender: FDA-Public Use
  Company Number: US-VIIV HEALTHCARE LIMITED-A0972352A

PATIENT
  Sex: Male

DRUGS (8)
  1. COMBIVIR [Suspect]
     Indication: HIV INFECTION
     Dosage: 1TAB TWICE PER DAY
     Route: 048
     Dates: start: 20120201
  2. ISENTRESS [Concomitant]
  3. COREG [Concomitant]
  4. POTASSIUM [Concomitant]
  5. SPIRIVA [Concomitant]
  6. COUMADIN [Concomitant]
  7. PRAVASTATIN [Concomitant]
  8. LEVOTHYROXINE [Concomitant]

REACTIONS (1)
  - Vision blurred [Not Recovered/Not Resolved]
